FAERS Safety Report 5733833-X (Version None)
Quarter: 2008Q2

REPORT INFORMATION
  Report Type: 
  Country: None (occurrence: None)
  Receive Date: 20080509
  Receipt Date: 20080428
  Transmission Date: 20081010
  Serious: Yes (Other)
  Sender: FDA-Public Use
  Company Number: CH-PFIZER INC-2008036786

PATIENT
  Sex: Male

DRUGS (1)
  1. SUTENT [Suspect]
     Indication: RENAL CELL CARCINOMA
     Dosage: DAILY DOSE:50MG-FREQ:CYCLIC, 4 WEEKS ON AND 2 WEEKS OFF.

REACTIONS (2)
  - ASTHENIA [None]
  - C-REACTIVE PROTEIN INCREASED [None]
